FAERS Safety Report 9642504 (Version 1)
Quarter: 2013Q4

REPORT INFORMATION
  Report Type: Spontaneous
  Country: US (occurrence: None)
  Receive Date: 20131021
  Receipt Date: 20131021
  Transmission Date: 20140711
  Serious: Yes (Death)
  Sender: FDA-Public Use
  Company Number: 20130076

PATIENT
  Age: 57 Year
  Sex: 0

DRUGS (1)
  1. SUBSYS [Suspect]
     Indication: CANCER PAIN
     Route: 060
     Dates: start: 20130113, end: 20130413

REACTIONS (1)
  - Death [None]
